FAERS Safety Report 8452270 (Version 4)
Quarter: 2015Q3

REPORT INFORMATION
  Report Type: Report from Study
  Country: CA (occurrence: CA)
  Receive Date: 20120311
  Receipt Date: 20150824
  Transmission Date: 20151125
  Serious: Yes (Hospitalization, Other)
  Sender: FDA-Public Use
  Company Number: PHHY2012CA019942

PATIENT
  Age: 75 Year
  Sex: Female

DRUGS (3)
  1. CLOZARIL [Suspect]
     Active Substance: CLOZAPINE
     Dosage: UNK
     Route: 048
     Dates: start: 20120524
  2. ARALOX [Concomitant]
     Indication: PRODUCT USED FOR UNKNOWN INDICATION
     Route: 065
  3. CLOZARIL [Suspect]
     Active Substance: CLOZAPINE
     Indication: SCHIZOPHRENIA
     Dosage: UNK
     Route: 048
     Dates: start: 20120126, end: 20120224

REACTIONS (12)
  - Chronic obstructive pulmonary disease [Recovered/Resolved]
  - Clostridium difficile infection [Unknown]
  - Superinfection [Unknown]
  - Schizophrenia [Recovering/Resolving]
  - Urinary tract infection [Recovering/Resolving]
  - Neutrophil count increased [Unknown]
  - Pneumonia [Recovering/Resolving]
  - White blood cell count increased [Unknown]
  - Gastroenteritis viral [Recovered/Resolved]
  - Coma [Unknown]
  - Diarrhoea [Recovered/Resolved]
  - Depressed level of consciousness [Unknown]

NARRATIVE: CASE EVENT DATE: 20150604
